FAERS Safety Report 9972006 (Version 1)
Quarter: 2014Q1

REPORT INFORMATION
  Report Type: Report from Study
  Country: US (occurrence: US)
  Receive Date: 20140306
  Receipt Date: 20140306
  Transmission Date: 20141002
  Serious: Yes (Other)
  Sender: FDA-Public Use
  Company Number: US-ABBVIE-13P-163-1151267-00

PATIENT
  Age: 50 Year
  Sex: Female

DRUGS (12)
  1. HUMIRA [Suspect]
     Indication: ANKYLOSING SPONDYLITIS
     Dates: start: 20130726, end: 201309
  2. ROCEPHIN [Suspect]
     Indication: STAPHYLOCOCCAL OSTEOMYELITIS
     Dates: start: 20130913
  3. SAVELLA [Concomitant]
     Indication: FIBROMYALGIA
  4. OPANA [Concomitant]
     Indication: PAIN
     Dosage: AS NEEDED
  5. OXYCODONE [Concomitant]
     Indication: PAIN
     Dosage: 10/325MG Q8H PRN
  6. PREMARIN [Concomitant]
     Indication: HORMONE REPLACEMENT THERAPY
  7. DICLOFENAC [Concomitant]
     Indication: ANTIINFLAMMATORY THERAPY
  8. BACLOFEN [Concomitant]
     Indication: MUSCLE RELAXANT THERAPY
  9. ALPRAZOLAM [Concomitant]
     Indication: ANXIETY
     Dosage: 1MG Q12H PRN
  10. METOPROLOL [Concomitant]
     Indication: PALPITATIONS
  11. HYOSCYAMINE [Concomitant]
     Indication: DYSPHAGIA
  12. NEXIUM [Concomitant]
     Indication: HIATUS HERNIA

REACTIONS (6)
  - Staphylococcal osteomyelitis [Recovering/Resolving]
  - Drug hypersensitivity [Recovering/Resolving]
  - Dermatitis allergic [Recovering/Resolving]
  - Urticaria [Recovering/Resolving]
  - Dyspnoea [Recovering/Resolving]
  - Depression [Unknown]
